FAERS Safety Report 7936776 (Version 2)
Quarter: 2013Q2

REPORT INFORMATION
  Report Type: Spontaneous
  Country: US (occurrence: US)
  Receive Date: 20110509
  Receipt Date: 20130523
  Transmission Date: 20140414
  Serious: Yes (Life-Threatening, Hospitalization, Other)
  Sender: FDA-Public Use
  Company Number: US-ALEXION-A201001450

PATIENT
  Age: 18 Year
  Sex: Female
  Weight: 73.2 kg

DRUGS (4)
  1. SOLIRIS 300MG [Suspect]
     Indication: NEUROMYELITIS OPTICA
     Dosage: 600 MG, QW
     Route: 042
     Dates: start: 20100909, end: 20100930
  2. SOLIRIS 300MG [Suspect]
     Dosage: 900 MG, Q2W
     Route: 042
     Dates: start: 20101007
  3. VITAMIN D                          /00107901/ [Concomitant]
  4. SENNA                              /00142201/ [Concomitant]
     Indication: CONSTIPATION

REACTIONS (7)
  - Acute lung injury [Not Recovered/Not Resolved]
  - Hypotension [Recovered/Resolved]
  - Meningitis meningococcal [Recovered/Resolved]
  - Meningococcal bacteraemia [Recovered/Resolved]
  - International normalised ratio increased [Recovered/Resolved]
  - Lung infiltration [Recovering/Resolving]
  - Myalgia [Recovering/Resolving]
